FAERS Safety Report 5524405-0 (Version None)
Quarter: 2007Q4

REPORT INFORMATION
  Report Type: 
  Country: None (occurrence: None)
  Receive Date: 20071121
  Receipt Date: 20071113
  Transmission Date: 20080405
  Serious: Yes (Other)
  Sender: FDA-Public Use
  Company Number: US-PFIZER INC-2007097075

PATIENT
  Sex: Female

DRUGS (6)
  1. CHANTIX [Suspect]
  2. LEVAQUIN [Suspect]
     Indication: CYSTITIS
  3. NEXIUM [Concomitant]
  4. PLAVIX [Concomitant]
  5. CRESTOR [Concomitant]
  6. AMLODIPINE [Concomitant]

REACTIONS (14)
  - CYSTITIS [None]
  - DIZZINESS [None]
  - EYE OEDEMA [None]
  - EYE SWELLING [None]
  - FEELING ABNORMAL [None]
  - FEELING HOT [None]
  - FUNGAL INFECTION [None]
  - HEADACHE [None]
  - HYPERSENSITIVITY [None]
  - LYMPHADENOPATHY [None]
  - NEOPLASM SKIN [None]
  - PHARYNGEAL OEDEMA [None]
  - PRURITUS GENERALISED [None]
  - SINUS DISORDER [None]
